FAERS Safety Report 10253112 (Version 1)
Quarter: 2014Q2

REPORT INFORMATION
  Report Type: Spontaneous
  Country: US (occurrence: US)
  Receive Date: 20140623
  Receipt Date: 20140623
  Transmission Date: 20141212
  Serious: Yes (Hospitalization)
  Sender: FDA-Public Use
  Company Number: US-GLAXOSMITHKLINE-A1077117A

PATIENT
  Age: 77 Year
  Sex: Female

DRUGS (5)
  1. ADVAIR DISKUS [Suspect]
     Indication: CHRONIC OBSTRUCTIVE PULMONARY DISEASE
     Dosage: 1PUFF PER DAY
     Route: 055
  2. ANORO ELLIPTA [Suspect]
     Indication: CHRONIC OBSTRUCTIVE PULMONARY DISEASE
     Dosage: 1PUFF PER DAY
     Route: 055
     Dates: start: 20140424, end: 20140529
  3. BLOOD PRESSURE MEDICATION [Concomitant]
  4. PREDNISONE [Concomitant]
  5. SUPPLEMENT [Concomitant]

REACTIONS (4)
  - Respiratory distress [Unknown]
  - Dyspnoea [Recovering/Resolving]
  - Vision blurred [Not Recovered/Not Resolved]
  - Off label use [Unknown]
